FAERS Safety Report 5372147-7 (Version None)
Quarter: 2007Q2

REPORT INFORMATION
  Report Type: 
  Country: None (occurrence: None)
  Receive Date: 20070627
  Receipt Date: 20070615
  Transmission Date: 20071010
  Serious: Yes (Other)
  Sender: FDA-Public Use
  Company Number: US-ROCHE-502778

PATIENT
  Age: 3 Year
  Sex: Male

DRUGS (3)
  1. ROCALTROL [Suspect]
     Indication: HYPERPARATHYROIDISM
     Dosage: CURRENT DRUG THERAPY ADDITIONAL INDICATION REPORTED AS RENAL FAILURE.
     Route: 048
  2. ROCALTROL [Suspect]
     Dosage: THE PATIENT RECEIVED INCREASING DOSES. FORMULATION REPORTED AS LIQUID.
     Route: 048
  3. FERROUS SULFATE [Suspect]
     Indication: DRUG USE FOR UNKNOWN INDICATION
     Dosage: FORMULATION REPORTED AS FERROUS SULFATE LIQUID.
     Route: 065

REACTIONS (2)
  - BLOOD PARATHYROID HORMONE INCREASED [None]
  - THERAPEUTIC PRODUCT CONTAMINATION [None]
